FAERS Safety Report 8495384-1 (Version None)
Quarter: 2012Q3

REPORT INFORMATION
  Report Type: 
  Country: None (occurrence: None)
  Receive Date: 20120702
  Receipt Date: 20120702
  Transmission Date: 20120928
  Serious: No
  Sender: FDA-Public Use
  Company Number: None

PATIENT
  Age: 50 Year
  Sex: Female
  Weight: 71.2147 kg

DRUGS (1)
  1. BUPROPION HCL [Suspect]
     Indication: DEPRESSION

REACTIONS (4)
  - MYALGIA [None]
  - PAIN IN EXTREMITY [None]
  - CRYING [None]
  - DRY MOUTH [None]
